FAERS Safety Report 21823679 (Version 1)
Quarter: 2023Q1

REPORT INFORMATION
  Report Type: Spontaneous
  Country: US (occurrence: None)
  Receive Date: 20230104
  Receipt Date: 20230104
  Transmission Date: 20230418
  Serious: Yes (Other)
  Sender: FDA-Public Use
  Company Number: None

PATIENT
  Age: 71 Year
  Sex: Female
  Weight: 96.75 kg

DRUGS (18)
  1. PROLIA [Suspect]
     Active Substance: DENOSUMAB
     Indication: Osteoporosis postmenopausal
     Dosage: OTHER QUANTITY : 1 INJECTION(S);?OTHER FREQUENCY : EVERY 6 MONTHS;?
     Route: 058
     Dates: start: 20221228, end: 20221228
  2. SYNTHROID [Concomitant]
     Active Substance: LEVOTHYROXINE SODIUM
  3. XANAX [Concomitant]
     Active Substance: ALPRAZOLAM
  4. PRAVACHOL [Concomitant]
     Active Substance: PRAVASTATIN SODIUM
  5. VITAMIN D [Concomitant]
     Active Substance: VITAMIN D NOS
  6. FLOVENT [Concomitant]
     Active Substance: FLUTICASONE PROPIONATE
  7. monoleuclast [Concomitant]
  8. FLOVENT [Concomitant]
     Active Substance: FLUTICASONE PROPIONATE
  9. prescription nexium [Concomitant]
  10. POTASSIUM [Concomitant]
     Active Substance: POTASSIUM
  11. CALCIUM [Concomitant]
     Active Substance: CALCIUM
  12. MINERALS\VITAMINS [Concomitant]
     Active Substance: MINERALS\VITAMINS
  13. FISH OIL [Concomitant]
     Active Substance: FISH OIL
  14. ALIGN [Concomitant]
     Active Substance: BIFIDOBACTERIUM LONGUM SUBSP. INFANTIS
  15. SACCHAROMYCES CEREVISIAE [Concomitant]
     Active Substance: SACCHAROMYCES CEREVISIAE
  16. ALPHA LIPOIC ACID [Concomitant]
     Active Substance: .ALPHA.-LIPOIC ACID
  17. MELATONIN [Concomitant]
     Active Substance: MELATONIN
  18. MAGNESIUM [Concomitant]
     Active Substance: MAGNESIUM

REACTIONS (2)
  - Pain in jaw [None]
  - Drug ineffective [None]

NARRATIVE: CASE EVENT DATE: 20221230
